FAERS Safety Report 9326276 (Version 1)
Quarter: 2013Q2

REPORT INFORMATION
  Report Type: Spontaneous
  Country: US (occurrence: None)
  Receive Date: 20130603
  Receipt Date: 20130603
  Transmission Date: 20140414
  Serious: Yes (Other)
  Sender: FDA-Public Use
  Company Number: None

PATIENT
  Age: 37 Year
  Sex: Female
  Weight: 88.45 kg

DRUGS (4)
  1. CYMBALTA (DULOXETINE HYDROCHLORIDE) [Suspect]
     Indication: DEPRESSION
     Dosage: 1 PILL  AT BEDTIME  MOUTH?STARTED TAKING PRODUCT:  ? 3-4  YEARS AGO
     Route: 048
  2. PRILOSEC [Concomitant]
  3. PREVALITE POWDER [Concomitant]
  4. IBUPROFEN [Concomitant]

REACTIONS (14)
  - Chills [None]
  - Hot flush [None]
  - Neck pain [None]
  - Nerve compression [None]
  - Drug withdrawal syndrome [None]
  - Feeling abnormal [None]
  - Headache [None]
  - Fatigue [None]
  - Pain [None]
  - Nausea [None]
  - Confusional state [None]
  - Dizziness [None]
  - Vomiting [None]
  - Influenza [None]
